FAERS Safety Report 5958268-6 (Version None)
Quarter: 2008Q4

REPORT INFORMATION
  Report Type: 
  Country: None (occurrence: None)
  Receive Date: 20081119
  Receipt Date: 20081022
  Transmission Date: 20090506
  Serious: No
  Sender: FDA-Public Use
  Company Number: US-BAYER-200836612NA

PATIENT
  Age: 43 Year
  Sex: Female
  Weight: 62 kg

DRUGS (1)
  1. MAGNEVIST [Suspect]
     Indication: NUCLEAR MAGNETIC RESONANCE IMAGING BRAIN
     Dosage: TOTAL DAILY DOSE: 6  ML  UNIT DOSE: 15 ML
     Route: 042
     Dates: start: 20081017, end: 20081017

REACTIONS (4)
  - DRY MOUTH [None]
  - DYSPHONIA [None]
  - EYE SWELLING [None]
  - RASH [None]
